FAERS Safety Report 21756752 (Version 1)
Quarter: 2022Q4

REPORT INFORMATION
  Report Type: Spontaneous
  Country: ES (occurrence: None)
  Receive Date: 20221220
  Receipt Date: 20221220
  Transmission Date: 20230112
  Serious: Yes (Hospitalization)
  Sender: FDA-Public Use
  Company Number: 2022A405786

PATIENT
  Age: 63 Year

DRUGS (10)
  1. QUETIAPINE [Suspect]
     Active Substance: QUETIAPINE
     Indication: Histrionic personality disorder
     Route: 048
  2. VENLAFAXINE [Concomitant]
     Active Substance: VENLAFAXINE HYDROCHLORIDE
  3. DIAZEPAM [Concomitant]
     Active Substance: DIAZEPAM
  4. FENTANYL [Concomitant]
     Active Substance: FENTANYL
  5. RUPATADINE [Concomitant]
     Active Substance: RUPATADINE
  6. CINITAPRIDE [Concomitant]
     Active Substance: CINITAPRIDE
  7. OMEPRAZOLE [Concomitant]
     Active Substance: OMEPRAZOLE
  8. LEVOSULPIRIDE [Concomitant]
     Active Substance: LEVOSULPIRIDE
  9. FLUTICASONE/ SALMETEROL [Concomitant]
  10. CELECOXIB [Concomitant]
     Active Substance: CELECOXIB

REACTIONS (1)
  - Colitis ischaemic [Recovered/Resolved]
